FAERS Safety Report 12804168 (Version 1)
Quarter: 2016Q4

REPORT INFORMATION
  Report Type: Spontaneous
  Country: US (occurrence: US)
  Receive Date: 20161003
  Receipt Date: 20161003
  Transmission Date: 20170207
  Serious: Yes (Other)
  Sender: FDA-Public Use
  Company Number: US-BAYER-2016-185570

PATIENT
  Age: 43 Year
  Sex: Female

DRUGS (1)
  1. BETASERON [Suspect]
     Active Substance: INTERFERON BETA-1B
     Indication: MULTIPLE SCLEROSIS
     Dosage: 0.25 MG, QOD
     Route: 058
     Dates: start: 201603

REACTIONS (6)
  - Dizziness [None]
  - Sluggishness [None]
  - Chills [None]
  - Feeling cold [None]
  - Asthenopia [None]
  - Influenza immunisation [None]

NARRATIVE: CASE EVENT DATE: 20160921
